FAERS Safety Report 5764556-9 (Version None)
Quarter: 2008Q2

REPORT INFORMATION
  Report Type: 
  Country: None (occurrence: None)
  Receive Date: 20080610
  Receipt Date: 20080529
  Transmission Date: 20081010
  Serious: Yes (Other)
  Sender: FDA-Public Use
  Company Number: GB-PFIZER INC-2008046289

PATIENT
  Age: 74 Year
  Sex: Female

DRUGS (1)
  1. NEURONTIN [Suspect]
     Indication: NECK PAIN

REACTIONS (5)
  - OEDEMA PERIPHERAL [None]
  - RENAL IMPAIRMENT [None]
  - SCLERODERMA [None]
  - SKIN DISORDER [None]
  - SKIN LESION [None]
